FAERS Safety Report 12794887 (Version 2)
Quarter: 2016Q4

REPORT INFORMATION
  Report Type: Report from Study
  Country: US (occurrence: US)
  Receive Date: 20160929
  Receipt Date: 20161130
  Transmission Date: 20170207
  Serious: Yes (Death, Other)
  Sender: FDA-Public Use
  Company Number: US-BAYER-2016-096107

PATIENT
  Age: 92 Year
  Sex: Male
  Weight: 63.94 kg

DRUGS (7)
  1. ADEMPAS [Suspect]
     Active Substance: RIOCIGUAT
     Indication: PULMONARY ARTERIAL HYPERTENSION
     Dosage: 2.5 MG, TID
     Route: 048
     Dates: end: 20160719
  2. TRACLEER [Concomitant]
     Active Substance: BOSENTAN
     Dosage: 125 MG, BID
     Dates: start: 20120912
  3. ADEMPAS [Suspect]
     Active Substance: RIOCIGUAT
     Indication: PULMONARY ARTERIAL HYPERTENSION
     Dosage: UNK
     Route: 048
     Dates: start: 20160502
  4. ADEMPAS [Suspect]
     Active Substance: RIOCIGUAT
     Indication: PULMONARY ARTERIAL HYPERTENSION
     Dosage: 1 MG, TID
     Route: 048
     Dates: end: 20160816
  5. DILTIAZEM. [Concomitant]
     Active Substance: DILTIAZEM
     Dosage: UNK
  6. ADEMPAS [Suspect]
     Active Substance: RIOCIGUAT
     Indication: PULMONARY ARTERIAL HYPERTENSION
     Dosage: 1 MG, TID
     Route: 048
  7. ADEMPAS [Suspect]
     Active Substance: RIOCIGUAT
     Indication: PULMONARY ARTERIAL HYPERTENSION
     Dosage: 2.5 MG, TID
     Route: 048

REACTIONS (27)
  - Tremor [Unknown]
  - Lethargy [None]
  - Dizziness [None]
  - Adverse drug reaction [None]
  - Asthenia [Unknown]
  - Heart rate decreased [None]
  - Nausea [Unknown]
  - Abdominal pain [None]
  - Diarrhoea [None]
  - Fatigue [Unknown]
  - Hypotension [None]
  - Hospice care [None]
  - Death [Fatal]
  - Nausea [Recovered/Resolved]
  - Dizziness [Unknown]
  - Fall [None]
  - Hypersomnia [None]
  - Somnolence [Unknown]
  - Blood pressure systolic decreased [None]
  - Nausea [None]
  - Proctalgia [None]
  - Fall [None]
  - Diastolic hypotension [Unknown]
  - Feeling abnormal [None]
  - Confusional state [None]
  - Blood glucose decreased [Unknown]
  - Contusion [None]

NARRATIVE: CASE EVENT DATE: 201607
